FAERS Safety Report 16570731 (Version 1)
Quarter: 2019Q3

REPORT INFORMATION
  Report Type: Spontaneous
  Country: DK (occurrence: DK)
  Receive Date: 20190715
  Receipt Date: 20190715
  Transmission Date: 20191004
  Serious: Yes (Other)
  Sender: FDA-Public Use
  Company Number: DK-TEVA-2019-DK-1076507

PATIENT
  Age: 59 Year
  Sex: Male

DRUGS (3)
  1. ALENDRONIC ACID [Concomitant]
     Active Substance: ALENDRONIC ACID
     Indication: OSTEOPOROSIS
     Dosage: STRENGTH: 70 MG.
     Route: 048
     Dates: start: 200811
  2. IMUREL [Concomitant]
     Active Substance: AZATHIOPRINE SODIUM
     Indication: MYASTHENIA GRAVIS
     Dosage: STRENGTH: 50 MG.
     Route: 048
     Dates: start: 201608
  3. PREDNISOLONE. [Suspect]
     Active Substance: PREDNISOLONE
     Indication: MYASTHENIA GRAVIS
     Dosage: DOSE: IN WRITING. STRENGTH: 25 MG, 75 MG, 37.5 MG, 50 MG AND 5 MG.
     Route: 048
     Dates: start: 20080331

REACTIONS (2)
  - Pain [Unknown]
  - Adrenal insufficiency [Unknown]

NARRATIVE: CASE EVENT DATE: 201711
